FAERS Safety Report 7528156-2 (Version None)
Quarter: 2011Q2

REPORT INFORMATION
  Report Type: 
  Country: None (occurrence: None)
  Receive Date: 20110607
  Receipt Date: 20110124
  Transmission Date: 20111010
  Serious: No
  Sender: FDA-Public Use
  Company Number: US-ASTRAZENECA-2010SE51684

PATIENT
  Sex: Female
  Weight: 98 kg

DRUGS (1)
  1. PRILOSEC [Suspect]
     Indication: GASTROOESOPHAGEAL REFLUX DISEASE
     Route: 048

REACTIONS (23)
  - ABDOMINAL PAIN UPPER [None]
  - DIZZINESS [None]
  - GASTRITIS [None]
  - ASTHENIA [None]
  - RASH [None]
  - ACQUIRED OESOPHAGEAL WEB [None]
  - FACIAL PAIN [None]
  - UPPER-AIRWAY COUGH SYNDROME [None]
  - MUSCULOSKELETAL DISCOMFORT [None]
  - REGURGITATION [None]
  - DRUG INEFFECTIVE [None]
  - OROPHARYNGEAL PAIN [None]
  - HIATUS HERNIA [None]
  - CONDITION AGGRAVATED [None]
  - GASTROOESOPHAGEAL REFLUX DISEASE [None]
  - SINUSITIS [None]
  - OTORRHOEA [None]
  - CHILLS [None]
  - FATIGUE [None]
  - MUSCULOSKELETAL PAIN [None]
  - CHEST PAIN [None]
  - EOSINOPHILIC OESOPHAGITIS [None]
  - GASTRIC POLYPS [None]
